FAERS Safety Report 4866499-1 (Version None)
Quarter: 2005Q4

REPORT INFORMATION
  Report Type: 
  Country: None (occurrence: None)
  Receive Date: 20051227
  Receipt Date: 20051005
  Transmission Date: 20060501
  Serious: Yes (Hospitalization)
  Sender: FDA-Public Use
  Company Number: US-MERCK-0510USA03913

PATIENT
  Age: 66 Year
  Sex: Female
  Weight: 103 kg

DRUGS (3)
  1. VIOXX [Suspect]
     Route: 048
     Dates: start: 19990101, end: 20041001
  2. PROZAC [Concomitant]
     Route: 048
  3. CARDIZEM CD [Concomitant]
     Route: 048

REACTIONS (7)
  - AMNESIA [None]
  - CEREBROVASCULAR ACCIDENT [None]
  - DEEP VEIN THROMBOSIS [None]
  - NEUTROPENIA [None]
  - OVARIAN CANCER [None]
  - PLEURAL EFFUSION [None]
  - PULMONARY EMBOLISM [None]
